FAERS Safety Report 13284466 (Version 2)
Quarter: 2017Q2

REPORT INFORMATION
  Report Type: Spontaneous
  Country: IT (occurrence: IT)
  Receive Date: 20170301
  Receipt Date: 20170403
  Transmission Date: 20170830
  Serious: Yes (Hospitalization)
  Sender: FDA-Public Use
  Company Number: IT-SA-2017SA033474

PATIENT
  Age: 78 Year
  Sex: Male

DRUGS (6)
  1. GLIMEPIRIDE. [Suspect]
     Active Substance: GLIMEPIRIDE
     Route: 065
  2. ROSUVASTATIN. [Suspect]
     Active Substance: ROSUVASTATIN
     Route: 048
  3. ACETYLSALICYLIC ACID [Suspect]
     Active Substance: ASPIRIN
     Route: 048
  4. LEVEMIR [Suspect]
     Active Substance: INSULIN DETEMIR
     Route: 065
  5. RAMIPRIL/HYDROCHLOROTHIAZIDE [Suspect]
     Active Substance: HYDROCHLOROTHIAZIDE\RAMIPRIL
     Route: 048
  6. METFORMIN [Suspect]
     Active Substance: METFORMIN HYDROCHLORIDE
     Indication: TYPE 2 DIABETES MELLITUS
     Route: 048

REACTIONS (14)
  - Blood urea increased [Recovering/Resolving]
  - Anion gap increased [Recovered/Resolved]
  - Somnolence [Unknown]
  - Blood creatinine increased [Recovered/Resolved]
  - Lactic acidosis [Recovering/Resolving]
  - Abdominal pain [Unknown]
  - Blood potassium increased [Recovered/Resolved]
  - PO2 decreased [Recovered/Resolved]
  - Anuria [Recovering/Resolving]
  - Drug prescribing error [Unknown]
  - Acute kidney injury [Recovering/Resolving]
  - Blood lactic acid increased [Recovered/Resolved]
  - Hypotension [Unknown]
  - Blood pH decreased [Recovered/Resolved]
